FAERS Safety Report 10285475 (Version 1)
Quarter: 2014Q3

REPORT INFORMATION
  Report Type: Report from Study
  Country: US (occurrence: US)
  Receive Date: 20140709
  Receipt Date: 20140709
  Transmission Date: 20150326
  Serious: Yes (Other)
  Sender: FDA-Public Use
  Company Number: US-ROCHE-1431144

PATIENT
  Age: 10 Year
  Sex: Female
  Weight: 27.1 kg

DRUGS (2)
  1. NUTROPIN AQ [Suspect]
     Active Substance: SOMATROPIN
     Indication: TURNER^S SYNDROME
     Route: 058
  2. TRILEPTAL [Concomitant]
     Active Substance: OXCARBAZEPINE
     Route: 048

REACTIONS (2)
  - Convulsion [Unknown]
  - Weight increased [Unknown]

NARRATIVE: CASE EVENT DATE: 201403
